FAERS Safety Report 8517242 (Version 2)
Quarter: 2012Q4

REPORT INFORMATION
  Report Type: 
  Country: US (occurrence: US)
  Receive Date: 20120417
  Receipt Date: 20120905
  Transmission Date: 20130627
  Serious: Yes (Hospitalization)
  Sender: FDA-Public Use
  Company Number: US-ASTRAZENECA-2011SE39466

PATIENT
  Age: 46 Year
  Sex: Female

DRUGS (1)
  1. NEXIUM [Suspect]
     Route: 048

REACTIONS (9)
  - Bronchitis [Unknown]
  - Chest pain [Unknown]
  - Dyspepsia [Unknown]
  - Dyspepsia [Unknown]
  - Gastric disorder [Unknown]
  - Abdominal discomfort [Unknown]
  - Abdominal discomfort [Unknown]
  - Abdominal pain upper [Unknown]
  - Drug dose omission [Unknown]
